FAERS Safety Report 17255904 (Version 1)
Quarter: 2020Q1

REPORT INFORMATION
  Report Type: Spontaneous
  Country: DE (occurrence: DE)
  Receive Date: 20200110
  Receipt Date: 20200110
  Transmission Date: 20200409
  Serious: Yes (Other)
  Sender: FDA-Public Use
  Company Number: DE-TEVA-2020-DE-1165969

PATIENT
  Age: 53 Year
  Sex: Male

DRUGS (3)
  1. PEMBROLIZUMAB. [Suspect]
     Active Substance: PEMBROLIZUMAB
     Indication: LUNG NEOPLASM MALIGNANT
     Dosage: 2 CYCLES
     Dates: start: 20180606, end: 20180718
  2. NINTEDANIB [Suspect]
     Active Substance: NINTEDANIB
     Dosage: UNK
     Dates: start: 20180801, end: 20180815
  3. DOCETAXEL. [Suspect]
     Active Substance: DOCETAXEL
     Dosage: UNK
     Dates: start: 20180801, end: 20180808

REACTIONS (3)
  - Pneumonia [Unknown]
  - Malignant neoplasm progression [Unknown]
  - Toxicity to various agents [Unknown]

NARRATIVE: CASE EVENT DATE: 2018
